FAERS Safety Report 9980070 (Version 1)
Quarter: 2014Q1

REPORT INFORMATION
  Report Type: Report from Study
  Country: US (occurrence: US)
  Receive Date: 20140307
  Receipt Date: 20140307
  Transmission Date: 20141002
  Serious: No
  Sender: FDA-Public Use
  Company Number: US-ABBVIE-13P-163-1175602-00

PATIENT
  Age: 70 Year
  Sex: Male

DRUGS (3)
  1. HUMIRA [Suspect]
     Indication: COLITIS ULCERATIVE
     Dates: start: 20131122
  2. ASACOL [Concomitant]
     Indication: COLITIS ULCERATIVE
     Dosage: 800MG X 2 TABLETS THREE TIMES A DAY
  3. MULTIVITAMIN [Concomitant]
     Indication: VITAMIN SUPPLEMENTATION

REACTIONS (1)
  - Lacrimation increased [Recovered/Resolved]
